FAERS Safety Report 9077299 (Version 1)
Quarter: 2013Q1

REPORT INFORMATION
  Report Type: Report from Study
  Country: US (occurrence: US)
  Receive Date: 20130130
  Receipt Date: 20130130
  Transmission Date: 20140127
  Serious: No
  Sender: FDA-Public Use
  Company Number: US-ABBOTT-12P-163-0958955-00

PATIENT
  Age: 54 Year
  Sex: Female

DRUGS (9)
  1. HUMIRA 40 MG/0.8 ML PEN [Suspect]
     Indication: PSORIATIC ARTHROPATHY
     Route: 058
     Dates: start: 201205
  2. LEVOTHYROXINE [Concomitant]
     Indication: HYPOTHYROIDISM
  3. VITAMIN D3 [Concomitant]
     Indication: PRODUCT USED FOR UNKNOWN INDICATION
  4. ECOTRIN [Concomitant]
     Indication: CARDIAC DISORDER
  5. RANITIDINE [Concomitant]
     Indication: GASTROOESOPHAGEAL REFLUX DISEASE
  6. LISINOPRIL [Concomitant]
     Indication: BLOOD PRESSURE
  7. HYDROXYZINE [Concomitant]
     Indication: PRURITUS
     Dosage: AT BEDTIME
  8. AMBIEN [Concomitant]
     Indication: INSOMNIA
     Dosage: AT BEDTIME
  9. MELOXICAM [Concomitant]
     Indication: ARTHRALGIA

REACTIONS (1)
  - Gingivitis [Recovering/Resolving]
